FAERS Safety Report 20483320 (Version 1)
Quarter: 2022Q1

REPORT INFORMATION
  Report Type: Spontaneous
  Country: JP (occurrence: JP)
  Receive Date: 20220217
  Receipt Date: 20220217
  Transmission Date: 20220423
  Serious: Yes (Hospitalization, Other)
  Sender: FDA-Public Use
  Company Number: JP-ASTELLAS-2022JP002651

PATIENT
  Age: 85 Year
  Sex: Female

DRUGS (4)
  1. TACROLIMUS [Suspect]
     Active Substance: TACROLIMUS
     Indication: Rheumatoid arthritis
     Dosage: 2 MG/DAY, UNKNOWN FREQ.
     Route: 065
  2. METHOTREXATE [Suspect]
     Active Substance: METHOTREXATE
     Indication: Rheumatoid arthritis
     Dosage: 8 MG/WEEK, UNKNOWN FREQ.
     Route: 065
  3. PREDNISOLONE [Concomitant]
     Active Substance: PREDNISOLONE
     Indication: Immunosuppressant drug therapy
     Dosage: 20 MG/DAY, UNKNOWN FREQ.
     Route: 048
  4. PREDNISOLONE [Concomitant]
     Active Substance: PREDNISOLONE
     Dosage: 5 MG/DAY, UNKNOWN FREQ.
     Route: 048

REACTIONS (5)
  - Immune reconstitution inflammatory syndrome [Unknown]
  - Cutaneous tuberculosis [Unknown]
  - Cellulitis [Unknown]
  - Mycobacterial infection [Unknown]
  - Epstein-Barr virus infection [Unknown]
